FAERS Safety Report 8403167-3 (Version None)
Quarter: 2012Q2

REPORT INFORMATION
  Report Type: 
  Country: None (occurrence: None)
  Receive Date: 20120601
  Receipt Date: 20120523
  Transmission Date: 20120825
  Serious: Yes (Disabling, Other)
  Sender: FDA-Public Use
  Company Number: CA-JNJFOC-20120518522

PATIENT
  Age: 39 Year
  Sex: Male

DRUGS (9)
  1. DOXORUBICIN HCL [Suspect]
     Indication: LYMPHOMA AIDS RELATED
     Route: 042
  2. EMTRICITABINE [Concomitant]
     Indication: ANTIFUNGAL PROPHYLAXIS
     Route: 065
  3. LOPINAVIR/RITONAVIR [Concomitant]
     Indication: ANTIFUNGAL PROPHYLAXIS
     Route: 065
  4. VINBLASTINE SULFATE [Suspect]
     Indication: LYMPHOMA AIDS RELATED
     Route: 065
  5. BLEOMYCIN SULFATE [Suspect]
     Indication: LYMPHOMA AIDS RELATED
     Route: 065
  6. DACARBAZINE [Suspect]
     Indication: LYMPHOMA AIDS RELATED
     Route: 065
  7. TENOFOVIR DISOPROXIL FUMARATE [Concomitant]
     Indication: ANTIFUNGAL PROPHYLAXIS
     Route: 065
  8. TRIMETHOPRIM [Concomitant]
     Indication: ANTIFUNGAL PROPHYLAXIS
     Route: 065
  9. NEUPOGEN [Concomitant]
     Indication: PROPHYLAXIS
     Route: 065

REACTIONS (4)
  - NEUROPATHY PERIPHERAL [None]
  - OFF LABEL USE [None]
  - NEUTROPENIA [None]
  - FEBRILE NEUTROPENIA [None]
